FAERS Safety Report 9331921 (Version 2)
Quarter: 2013Q3

REPORT INFORMATION
  Report Type: Spontaneous
  Country: US (occurrence: US)
  Receive Date: 20130605
  Receipt Date: 20130705
  Transmission Date: 20140515
  Serious: Yes (Hospitalization, Other)
  Sender: FDA-Public Use
  Company Number: US-ACTELION-A-US2013-83790

PATIENT
  Age: 69 Year
  Sex: Female

DRUGS (3)
  1. TRACLEER [Suspect]
     Indication: PULMONARY ARTERIAL HYPERTENSION
     Dosage: 125 MG, UNK
     Route: 048
     Dates: start: 20080806
  2. TRACLEER [Suspect]
     Dosage: 62.5 MG BID
     Route: 048
     Dates: start: 20070828, end: 20080805
  3. TRACLEER [Suspect]
     Dosage: UNK
     Route: 048
     Dates: start: 20130521

REACTIONS (1)
  - Colon operation [Recovering/Resolving]
